FAERS Safety Report 16469576 (Version 1)
Quarter: 2019Q3

REPORT INFORMATION
  Report Type: Spontaneous
  Country: MX (occurrence: MX)
  Receive Date: 20190622
  Receipt Date: 20190622
  Transmission Date: 20191004
  Serious: Yes (Other)
  Sender: FDA-Public Use
  Company Number: None

PATIENT
  Age: 62 Year
  Sex: Male
  Weight: 72 kg

DRUGS (1)
  1. GABAPENTINA 300 MG. [Suspect]
     Active Substance: GABAPENTIN
     Indication: SCIATICA
     Dosage: ?          QUANTITY:3 CAPSULE(S);OTHER ROUTE:ORAL?
     Route: 048
     Dates: start: 20180608, end: 20190622

REACTIONS (1)
  - Diplopia [None]
